FAERS Safety Report 4614051-5 (Version None)
Quarter: 2005Q1

REPORT INFORMATION
  Report Type: 
  Country: None (occurrence: None)
  Receive Date: 20050316
  Receipt Date: 20050301
  Transmission Date: 20050727
  Serious: Yes (Death)
  Sender: FDA-Public Use
  Company Number: AU_050308411

PATIENT
  Age: 36 Year
  Sex: Female
  Weight: 105 kg

DRUGS (5)
  1. OLANZAPINE [Suspect]
     Indication: BIPOLAR DISORDER
     Dosage: 20 MG
     Dates: start: 20001201
  2. ZOLOFT [Concomitant]
  3. XANAX (ALPRAZOLAM DUM) [Concomitant]
  4. LITHIUM [Concomitant]
  5. THYROXINE (LEVOTHYROXINE SODIUM) [Concomitant]

REACTIONS (6)
  - AUTOIMMUNE THYROIDITIS [None]
  - DRUG TOXICITY [None]
  - HEPATOMEGALY [None]
  - LOWER RESPIRATORY TRACT INFECTION [None]
  - PNEUMONIA [None]
  - SPLENOMEGALY [None]
